FAERS Safety Report 13461075 (Version 1)
Quarter: 2017Q2

REPORT INFORMATION
  Report Type: Report from Study
  Country: DE (occurrence: DE)
  Receive Date: 20170420
  Receipt Date: 20170420
  Transmission Date: 20170830
  Serious: Yes (Life-Threatening, Hospitalization, Other)
  Sender: FDA-Public Use
  Company Number: DE-ROCHE-1160398

PATIENT
  Age: 55 Year
  Sex: Female
  Weight: 297.6 kg

DRUGS (24)
  1. CIPROFLOXACIN HYDROCHLORIDE. [Suspect]
     Active Substance: CIPROFLOXACIN HYDROCHLORIDE
     Indication: PRODUCT USED FOR UNKNOWN INDICATION
     Route: 065
     Dates: start: 20121119
  2. ATENOLOL. [Concomitant]
     Active Substance: ATENOLOL
     Route: 065
     Dates: start: 2006
  3. LOMOTIL (ATROPINE/DIPHENOXYLATE) [Concomitant]
  4. LANTUS [Concomitant]
     Active Substance: INSULIN GLARGINE
     Dosage: 20-30UNITS/DAY
     Route: 065
     Dates: start: 20121013
  5. NITROGLYCERIN OINTMENT [Concomitant]
     Route: 065
     Dates: start: 201205
  6. CARBOPLATIN. [Suspect]
     Active Substance: CARBOPLATIN
     Dosage: AUC 6 LAST DOSE PRIOR TO SAE: 12/NOV/2012
     Route: 042
     Dates: start: 20121112
  7. LISINOPRIL/HCTZ [Concomitant]
     Active Substance: HYDROCHLOROTHIAZIDE\LISINOPRIL
     Dosage: 20/12.5
     Route: 065
     Dates: start: 2006
  8. PERTUZUMAB [Suspect]
     Active Substance: PERTUZUMAB
     Indication: HER-2 POSITIVE BREAST CANCER
     Dosage: LOADING DOSE.
     Route: 042
     Dates: start: 20120924, end: 20120924
  9. PROMETHAZINE [Concomitant]
     Active Substance: PROMETHAZINE\PROMETHAZINE HYDROCHLORIDE
     Route: 065
     Dates: start: 20120924
  10. GABAPENTIN. [Concomitant]
     Active Substance: GABAPENTIN
     Route: 065
     Dates: start: 2006
  11. PROTONIX (OMEPRAZOLE) [Concomitant]
  12. PRAVASTATIN. [Concomitant]
     Active Substance: PRAVASTATIN
  13. TRASTUZUMAB [Suspect]
     Active Substance: TRASTUZUMAB
     Indication: HER-2 POSITIVE BREAST CANCER
     Dosage: LOADING DOSE.
     Route: 042
     Dates: start: 20120924, end: 20120924
  14. LEVOTHYROXINE SODIUM. [Concomitant]
     Active Substance: LEVOTHYROXINE SODIUM
     Dosage: 25MCG
     Route: 065
     Dates: start: 2010
  15. SINGULAIR [Concomitant]
     Active Substance: MONTELUKAST SODIUM
     Route: 065
     Dates: start: 2006
  16. PANTOPRAZOLE [Concomitant]
     Active Substance: PANTOPRAZOLE
     Route: 065
     Dates: start: 2007
  17. MELOXICAM. [Concomitant]
     Active Substance: MELOXICAM
     Route: 065
     Dates: start: 2009
  18. TRASTUZUMAB [Suspect]
     Active Substance: TRASTUZUMAB
     Dosage: MAINTENANCE DOSE?LAST DOSE PRIOR TO SAE: 12/NOV/2012
     Route: 042
     Dates: start: 20121015
  19. DOCETAXEL. [Suspect]
     Active Substance: DOCETAXEL
     Indication: HER-2 POSITIVE BREAST CANCER
     Route: 042
     Dates: start: 20120924
  20. CARBOPLATIN. [Suspect]
     Active Substance: CARBOPLATIN
     Indication: HER-2 POSITIVE BREAST CANCER
     Route: 042
     Dates: start: 20120924
  21. ZYRTEC [Concomitant]
     Active Substance: CETIRIZINE HYDROCHLORIDE
     Route: 065
     Dates: start: 201208
  22. DOCETAXEL. [Suspect]
     Active Substance: DOCETAXEL
     Dosage: LAST DOSE PRIOR TO SAE: 12/NOV/2012
     Route: 042
     Dates: start: 20121112
  23. PITAVASTATIN. [Concomitant]
     Active Substance: PITAVASTATIN CALCIUM
     Route: 065
     Dates: start: 2010
  24. PERTUZUMAB [Suspect]
     Active Substance: PERTUZUMAB
     Dosage: MAINTENANCE DOSE?LAST DOSE PRIOR TO SAE: 12/NOV/2012
     Route: 042
     Dates: start: 20121015

REACTIONS (3)
  - Hypomagnesaemia [Recovered/Resolved]
  - Enteritis [Recovered/Resolved]
  - Thrombocytopenia [Recovered/Resolved]

NARRATIVE: CASE EVENT DATE: 20120924
